FAERS Safety Report 9431372 (Version 4)
Quarter: 2013Q4

REPORT INFORMATION
  Report Type: Report from Study
  Country: US (occurrence: US)
  Receive Date: 20130730
  Receipt Date: 20131025
  Transmission Date: 20140711
  Serious: Yes (Hospitalization, Other)
  Sender: FDA-Public Use
  Company Number: US-ALEXION PHARMACEUTICALS INC.-A201301734

PATIENT
  Age: 25 Year
  Sex: Male
  Weight: 75.28 kg

DRUGS (3)
  1. SOLIRIS [Suspect]
     Indication: HAEMOLYTIC URAEMIC SYNDROME
     Dosage: UNK
     Route: 042
     Dates: start: 20130622, end: 20130702
  2. SOLIRIS [Suspect]
     Dosage: 900 MG, UNK
     Route: 042
     Dates: start: 20130712
  3. SOLIRIS [Suspect]
     Dosage: 1200 MG, UNKUNK
     Dates: start: 20130809

REACTIONS (7)
  - Multi-organ failure [Recovered/Resolved]
  - Gastrointestinal haemorrhage [Recovered/Resolved]
  - Gallbladder enlargement [Recovered/Resolved]
  - Lung infiltration [Unknown]
  - Pulmonary oedema [Unknown]
  - Thrombotic microangiopathy [Unknown]
  - Weight decreased [Unknown]
